FAERS Safety Report 6484233-9 (Version None)
Quarter: 2009Q4

REPORT INFORMATION
  Report Type: 
  Country: None (occurrence: None)
  Receive Date: 20091209
  Receipt Date: 20091201
  Transmission Date: 20100525
  Serious: Yes (Hospitalization)
  Sender: FDA-Public Use
  Company Number: B0602158A

PATIENT
  Sex: Female

DRUGS (7)
  1. FLOLAN [Suspect]
     Indication: PULMONARY HYPERTENSION
     Route: 042
     Dates: start: 20091015, end: 20091030
  2. TRACLEER [Concomitant]
     Indication: PULMONARY HYPERTENSION
     Dosage: 250MG PER DAY
     Route: 048
  3. THYRADIN S [Concomitant]
     Indication: HYPOTHYROIDISM
     Dosage: 25MCG PER DAY
     Route: 048
  4. PREDONINE [Concomitant]
     Indication: CREST SYNDROME
     Dosage: 5MG PER DAY
     Route: 048
  5. ZYLORIC [Concomitant]
     Dosage: 100MG PER DAY
     Route: 048
  6. FUROSEMIDE [Concomitant]
     Dosage: 320MG PER DAY
     Route: 048
  7. DOCARPAMINE [Concomitant]
     Indication: CARDIAC FAILURE
     Dosage: 1500MG PER DAY
     Route: 048

REACTIONS (5)
  - MALAISE [None]
  - PULMONARY ALVEOLAR HAEMORRHAGE [None]
  - PULMONARY CONGESTION [None]
  - URINE OUTPUT DECREASED [None]
  - WEIGHT INCREASED [None]
